FAERS Safety Report 12220645 (Version 5)
Quarter: 2018Q4

REPORT INFORMATION
  Report Type: Spontaneous
  Country: IT (occurrence: IT)
  Receive Date: 20160330
  Receipt Date: 20181106
  Transmission Date: 20190204
  Serious: Yes (Other)
  Sender: FDA-Public Use
  Company Number: PHHY2016IT038768

PATIENT
  Age: 59 Year
  Sex: Male

DRUGS (6)
  1. ETANERCEPT [Suspect]
     Active Substance: ETANERCEPT
     Indication: PSORIASIS
     Dosage: 25 MG, BIW
     Route: 065
     Dates: start: 2009, end: 2013
  2. PREDNISOLONE. [Suspect]
     Active Substance: PREDNISOLONE
     Indication: PSORIASIS
     Dosage: 25 MG, QD
     Route: 065
  3. CICLOSPORIN [Suspect]
     Active Substance: CYCLOSPORINE
     Indication: PSORIASIS
     Dosage: 3 MG/KG, QD
     Route: 065
  4. EFALIZUMAB [Suspect]
     Active Substance: EFALIZUMAB
     Indication: PEMPHIGOID
     Dosage: 1 MG/KG, QW
     Route: 065
     Dates: start: 2007, end: 2009
  5. DAPSONE. [Concomitant]
     Active Substance: DAPSONE
     Indication: PEMPHIGOID
     Dosage: 100 MG, QD
     Route: 065
  6. ETANERCEPT [Suspect]
     Active Substance: ETANERCEPT
     Indication: PEMPHIGOID

REACTIONS (3)
  - Pemphigoid [Unknown]
  - Papillary cystadenoma lymphomatosum [Unknown]
  - Blister [Unknown]

NARRATIVE: CASE EVENT DATE: 2013
